FAERS Safety Report 16914691 (Version 2)
Quarter: 2019Q4

REPORT INFORMATION
  Report Type: Spontaneous
  Country: US (occurrence: US)
  Receive Date: 20191014
  Receipt Date: 20191226
  Transmission Date: 20200122
  Serious: Yes (Other)
  Sender: FDA-Public Use
  Company Number: US-PFIZER INC-2019440210

PATIENT
  Age: 74 Year
  Sex: Female

DRUGS (1)
  1. AROMASIN [Suspect]
     Active Substance: EXEMESTANE
     Indication: BREAST NEOPLASM
     Dosage: 25 MG, UNK

REACTIONS (3)
  - Fibromyalgia [Unknown]
  - Chronic obstructive pulmonary disease [Unknown]
  - Glaucoma [Unknown]
